FAERS Safety Report 22633506 (Version 1)
Quarter: 2023Q2

REPORT INFORMATION
  Report Type: Spontaneous
  Country: RU (occurrence: RU)
  Receive Date: 20230623
  Receipt Date: 20230623
  Transmission Date: 20230722
  Serious: Yes (Hospitalization)
  Sender: FDA-Public Use
  Company Number: RU-NAARI PTE LIMITED-2023NP000038

PATIENT
  Age: 19 Year
  Sex: Female

DRUGS (2)
  1. DROSPIRENONE AND ETHINYL ESTRADIOL [Suspect]
     Active Substance: DROSPIRENONE\ETHINYL ESTRADIOL
     Indication: Amenorrhoea
     Dosage: UNK, 3MG/0.03MG FOR 5 MONTHS
     Route: 048
  2. DYDROGESTERONE [Suspect]
     Active Substance: DYDROGESTERONE
     Indication: Amenorrhoea
     Dosage: CYCLIC REGIMEN, UNKNOWN
     Route: 048

REACTIONS (3)
  - Pneumonia [Recovered/Resolved]
  - Thrombosis [Recovered/Resolved]
  - Off label use [Unknown]
